FAERS Safety Report 15500444 (Version 1)
Quarter: 2018Q4

REPORT INFORMATION
  Report Type: Spontaneous
  Country: US (occurrence: US)
  Receive Date: 20181015
  Receipt Date: 20181015
  Transmission Date: 20190205
  Serious: No
  Sender: FDA-Public Use
  Company Number: US-CELGENEUS-USA-20181003084

PATIENT
  Sex: Male
  Weight: 109.41 kg

DRUGS (2)
  1. REVLIMID [Suspect]
     Active Substance: LENALIDOMIDE
     Indication: PLASMA CELL MYELOMA
     Dosage: 10 MILLIGRAM
     Route: 048
     Dates: start: 20180412
  2. REVLIMID [Suspect]
     Active Substance: LENALIDOMIDE
     Indication: NON-HODGKIN^S LYMPHOMA
     Dosage: 5 MILLIGRAM
     Route: 048
     Dates: start: 201809

REACTIONS (7)
  - Erythema [Not Recovered/Not Resolved]
  - Diarrhoea [Recovering/Resolving]
  - Swollen tongue [Unknown]
  - Peripheral swelling [Unknown]
  - Decreased appetite [Unknown]
  - Nausea [Unknown]
  - Rash [Not Recovered/Not Resolved]

NARRATIVE: CASE EVENT DATE: 2018
